FAERS Safety Report 6732500-3 (Version None)
Quarter: 2010Q2

REPORT INFORMATION
  Report Type: 
  Country: None (occurrence: None)
  Receive Date: 20100519
  Receipt Date: 20100512
  Transmission Date: 20101027
  Serious: Yes (Life-Threatening, Hospitalization)
  Sender: FDA-Public Use
  Company Number: CH-ELI_LILLY_AND_COMPANY-CH201003003885

PATIENT
  Age: 50 Year
  Sex: Female
  Weight: 75.9 kg

DRUGS (8)
  1. HUMALOG [Suspect]
     Indication: TYPE 1 DIABETES MELLITUS
     Dosage: 20 U, DAILY (1/D)
     Route: 058
     Dates: start: 19990901
  2. HUMALOG [Suspect]
     Dosage: 21.6 D/F, DAILY (1/D)
     Route: 058
     Dates: start: 20080613
  3. OXYCODON [Concomitant]
     Indication: ANALGESIC THERAPY
     Dosage: 60 MG, DAILY (1/D)
     Route: 048
     Dates: start: 20040101
  4. OXYCODON [Concomitant]
     Dosage: 60 MG, DAILY (1/D)
     Route: 048
     Dates: start: 20081201
  5. EFFEXOR [Concomitant]
     Indication: DEPRESSION
     Dosage: 150 MG, DAILY (1/D)
     Route: 048
     Dates: start: 20040101
  6. EFFEXOR [Concomitant]
     Dosage: 75 MG, DAILY (1/D)
     Route: 048
     Dates: start: 20070501
  7. PLAQUENIL /00072601/ [Concomitant]
     Indication: COLLAGEN DISORDER
     Dosage: 200 MG, DAILY (1/D)
     Route: 048
     Dates: start: 20040101
  8. DAFALGAN [Concomitant]
     Indication: COLLAGEN DISORDER
     Dosage: 4 G, DAILY (1/D)
     Route: 048
     Dates: start: 20080101

REACTIONS (5)
  - DIABETIC COMA [None]
  - HYPERGLYCAEMIA [None]
  - KETOACIDOSIS [None]
  - SOMNOLENCE [None]
  - VOMITING [None]
